FAERS Safety Report 9522213 (Version 1)
Quarter: 2013Q1

REPORT INFORMATION
  Report Type: Spontaneous
  Country: US (occurrence: None)
  Receive Date: 20130305
  Receipt Date: 20130305
  Transmission Date: 20140127
  Serious: Yes (Other)
  Sender: FDA-Public Use
  Company Number: 163-21880-12072591

PATIENT
  Age: 70 Year
  Sex: Male
  Weight: 89.36 kg

DRUGS (1)
  1. REVLIMID (LENALIDOMIDE) (CAPSULES) [Suspect]
     Indication: PLASMA CELL MYELOMA
     Dosage: 15 MG - 10 MG, PO
     Route: 048
     Dates: start: 200810

REACTIONS (2)
  - Renal failure acute [None]
  - Anaemia [None]
